FAERS Safety Report 7335021-2 (Version None)
Quarter: 2011Q1

REPORT INFORMATION
  Report Type: 
  Country: None (occurrence: None)
  Receive Date: 20110307
  Receipt Date: 20110224
  Transmission Date: 20110831
  Serious: Yes (Hospitalization)
  Sender: FDA-Public Use
  Company Number: CA-JNJFOC-20110300174

PATIENT
  Sex: Male
  Weight: 71 kg

DRUGS (11)
  1. PENTASA [Concomitant]
  2. FOSAMAX [Concomitant]
  3. PANTOLOC [Concomitant]
  4. CALCIUM AND VITAMIN D [Concomitant]
  5. PREDNISONE [Concomitant]
     Dosage: DIE
  6. MINOCYCLINE HCL [Concomitant]
  7. ZOPLICONE [Concomitant]
     Dosage: DIE
  8. NEXIUM [Concomitant]
     Dosage: DIE
  9. ACID FOLIC [Concomitant]
  10. REMICADE [Suspect]
     Indication: CROHN'S DISEASE
     Route: 042
  11. MOTILIUM [Concomitant]

REACTIONS (1)
  - VASCULAR GRAFT [None]
